FAERS Safety Report 23578352 (Version 2)
Quarter: 2024Q2

REPORT INFORMATION
  Report Type: Spontaneous
  Country: US (occurrence: US)
  Receive Date: 20240229
  Receipt Date: 20240521
  Transmission Date: 20240716
  Serious: Yes (Other)
  Sender: FDA-Public Use
  Company Number: US-BRISTOL-MYERS SQUIBB COMPANY-2024-032670

PATIENT
  Age: 73 Year
  Sex: Female

DRUGS (2)
  1. POMALYST [Suspect]
     Active Substance: POMALIDOMIDE
     Indication: Plasma cell myeloma refractory
     Dosage: CYCLIC
     Route: 048
  2. POMALYST [Suspect]
     Active Substance: POMALIDOMIDE
     Dosage: FREQUENCY: EVERY OTHER DAY FOR 21 DAYS ON AND 7 DAYS OFF
     Route: 048

REACTIONS (7)
  - Oedema peripheral [Unknown]
  - Diarrhoea [Unknown]
  - Flatulence [Unknown]
  - Product dose omission issue [Unknown]
  - Renal disorder [Unknown]
  - Skin reaction [Unknown]
  - Off label use [Unknown]
